FAERS Safety Report 9830912 (Version 3)
Quarter: 2015Q1

REPORT INFORMATION
  Report Type: Report from Study
  Country: KR (occurrence: KR)
  Receive Date: 20140120
  Receipt Date: 20150110
  Transmission Date: 20150721
  Serious: No
  Sender: FDA-Public Use
  Company Number: PHHY2014KR005277

PATIENT
  Age: 61 Year
  Sex: Female

DRUGS (8)
  1. TACOPEN [Concomitant]
     Indication: BONE PAIN
     Dosage: 3 DF, UNK
     Route: 048
     Dates: start: 20130924, end: 20131006
  2. VILDAGLIPTIN [Concomitant]
     Active Substance: VILDAGLIPTIN
     Indication: DIABETES MELLITUS
     Dosage: 1 DF, UNK
     Route: 048
     Dates: start: 20131011
  3. AMN107 [Suspect]
     Active Substance: NILOTINIB
     Indication: CHRONIC MYELOID LEUKAEMIA
     Dosage: 800 MG, QD
     Route: 048
     Dates: start: 20130930, end: 20131007
  4. AMARYL M [Concomitant]
     Active Substance: GLIMEPIRIDE\METFORMIN
     Indication: DIABETES MELLITUS
     Dosage: 1 DF, UNK
     Route: 048
     Dates: start: 20131028
  5. CLOBETASOL 17-PROP [Concomitant]
     Dosage: 1TU
     Route: 061
     Dates: start: 20131021, end: 20131028
  6. MVI [Concomitant]
     Active Substance: VITAMINS
     Indication: ADJUVANT THERAPY
     Dosage: 1 DF, UNK
     Route: 042
     Dates: start: 20131009, end: 20131010
  7. AMN107 [Suspect]
     Active Substance: NILOTINIB
     Dosage: 600 MG, QD
     Route: 048
     Dates: start: 20131017, end: 20131031
  8. METOCLOPRAMIDE HCL [Concomitant]
     Active Substance: METOCLOPRAMIDE HYDROCHLORIDE
     Indication: NAUSEA
     Dosage: 1 DF, UNK
     Route: 042
     Dates: start: 20131009, end: 20131031

REACTIONS (2)
  - Dizziness [Recovered/Resolved]
  - Dyspepsia [Recovered/Resolved]

NARRATIVE: CASE EVENT DATE: 20131007
